FAERS Safety Report 4349216-3 (Version None)
Quarter: 2004Q2

REPORT INFORMATION
  Report Type: 
  Country: None (occurrence: None)
  Receive Date: 20040428
  Receipt Date: 20040420
  Transmission Date: 20050107
  Serious: Yes (Life-Threatening)
  Sender: FDA-Public Use
  Company Number: US-ROCHE-365099

PATIENT
  Age: 17 Year
  Sex: Male

DRUGS (3)
  1. ACCUTANE [Suspect]
     Indication: DRUG USE FOR UNKNOWN INDICATION
     Dosage: DOSAGE REGIMEN REPORTED AS: BID.
     Route: 048
     Dates: start: 20031021, end: 20040417
  2. ALEVE [Concomitant]
  3. ADVIL [Concomitant]

REACTIONS (6)
  - ALCOHOL USE [None]
  - DEPRESSION [None]
  - HAEMATEMESIS [None]
  - MULTIPLE DRUG OVERDOSE [None]
  - OVERDOSE [None]
  - SUICIDAL IDEATION [None]
